FAERS Safety Report 21812899 (Version 1)
Quarter: 2023Q1

REPORT INFORMATION
  Report Type: Spontaneous
  Country: CA (occurrence: CA)
  Receive Date: 20230103
  Receipt Date: 20230103
  Transmission Date: 20230417
  Serious: Yes (Other)
  Sender: FDA-Public Use
  Company Number: CA-MLMSERVICE-20221222-3995135-2

PATIENT
  Age: 70 Year
  Sex: Male

DRUGS (14)
  1. DEXAMETHASONE [Suspect]
     Active Substance: DEXAMETHASONE
     Indication: Product used for unknown indication
     Route: 065
  2. PREDNISOLONE [Suspect]
     Active Substance: PREDNISOLONE
     Indication: Gout
     Route: 065
  3. OXALIPLATIN [Concomitant]
     Active Substance: OXALIPLATIN
     Indication: Metastases to liver
     Dosage: EVERY 2-WK?11 CYCLES
  4. OXALIPLATIN [Concomitant]
     Active Substance: OXALIPLATIN
     Indication: Panniculitis
  5. OXALIPLATIN [Concomitant]
     Active Substance: OXALIPLATIN
     Indication: Acinar cell carcinoma of pancreas
  6. LEUCOVORIN [Concomitant]
     Active Substance: LEUCOVORIN
     Indication: Metastases to liver
     Dosage: EVERY 2-WK?11 CYCLES
  7. LEUCOVORIN [Concomitant]
     Active Substance: LEUCOVORIN
     Indication: Panniculitis
  8. LEUCOVORIN [Concomitant]
     Active Substance: LEUCOVORIN
     Indication: Acinar cell carcinoma of pancreas
  9. FLUOROURACIL [Concomitant]
     Active Substance: FLUOROURACIL
     Indication: Panniculitis
     Dosage: EVERY 2-WK?11 CYCLES
  10. FLUOROURACIL [Concomitant]
     Active Substance: FLUOROURACIL
     Indication: Metastases to liver
  11. FLUOROURACIL [Concomitant]
     Active Substance: FLUOROURACIL
     Indication: Acinar cell carcinoma of pancreas
  12. IRINOTECAN [Concomitant]
     Active Substance: IRINOTECAN
     Indication: Metastases to liver
     Dosage: EVERY 2-WK?11 CYCLES
  13. IRINOTECAN [Concomitant]
     Active Substance: IRINOTECAN
     Indication: Acinar cell carcinoma of pancreas
  14. IRINOTECAN [Concomitant]
     Active Substance: IRINOTECAN
     Indication: Panniculitis

REACTIONS (1)
  - Substance-induced psychotic disorder [Recovering/Resolving]
